FAERS Safety Report 4688690-X (Version None)
Quarter: 2005Q2

REPORT INFORMATION
  Report Type: 
  Country: None (occurrence: None)
  Receive Date: 20050608
  Receipt Date: 20050131
  Transmission Date: 20051028
  Serious: No
  Sender: FDA-Public Use
  Company Number: 2004-BP-09770BP

PATIENT
  Age: 71 Year
  Sex: Female

DRUGS (10)
  1. SPIRIVA [Suspect]
     Indication: CHRONIC OBSTRUCTIVE PULMONARY DISEASE
     Dosage: 18 MCG (18 MCG), IH
     Route: 055
     Dates: start: 20040802
  2. SPIRIVA [Suspect]
     Indication: CHRONIC OBSTRUCTIVE PULMONARY DISEASE
     Dosage: 18 MCG (18 MCG), IH
     Route: 055
     Dates: start: 20040802
  3. LIPITOR [Concomitant]
  4. TAMOXIFEN CITRATE [Concomitant]
  5. ZOMETA [Concomitant]
  6. DIOVAN [Concomitant]
  7. HYDROCHLOROTHIAZIDE [Concomitant]
  8. CALCIUM GLUCONATE [Concomitant]
  9. MULTIVITAMIN [Concomitant]
  10. ACETYLSALICYLIC ACID SRT [Concomitant]

REACTIONS (3)
  - AGEUSIA [None]
  - DYSPNOEA [None]
  - PULMONARY CONGESTION [None]
